FAERS Safety Report 13952616 (Version 1)
Quarter: 2017Q3

REPORT INFORMATION
  Report Type: Spontaneous
  Country: GB (occurrence: GB)
  Receive Date: 20170911
  Receipt Date: 20170911
  Transmission Date: 20171128
  Serious: Yes (Life-Threatening, Hospitalization)
  Sender: FDA-Public Use
  Company Number: GB-TORRENT-00015576

PATIENT
  Age: 85 Year
  Sex: Female
  Weight: 55 kg

DRUGS (6)
  1. SPIRONOLACTONE. [Concomitant]
     Active Substance: SPIRONOLACTONE
  2. GALANTAMINE. [Concomitant]
     Active Substance: GALANTAMINE
  3. LEVOTHYROXINE. [Concomitant]
     Active Substance: LEVOTHYROXINE
  4. DONEPEZIL HYDROCHLORIDE. [Suspect]
     Active Substance: DONEPEZIL HYDROCHLORIDE
  5. MOVICOL [Concomitant]
     Active Substance: POLYETHYLENE GLYCOL 3350\POTASSIUM CHLORIDE\SODIUM BICARBONATE\SODIUM CHLORIDE
  6. FULTIUM-D3 [Concomitant]
     Active Substance: CHOLECALCIFEROL

REACTIONS (2)
  - Pruritus [Recovered/Resolved]
  - Liver function test abnormal [Recovering/Resolving]

NARRATIVE: CASE EVENT DATE: 20170327
